FAERS Safety Report 9250574 (Version 3)
Quarter: 2013Q3

REPORT INFORMATION
  Report Type: Report from Study
  Country: JP (occurrence: JP)
  Receive Date: 20130424
  Receipt Date: 20130701
  Transmission Date: 20140515
  Serious: Yes (Death, Other)
  Sender: FDA-Public Use
  Company Number: JP-ROCHE-1214394

PATIENT
  Age: 73 Year
  Sex: Female

DRUGS (17)
  1. METHOXY POLYETHYLENE GLYCOL-EPOETIN BETA [Suspect]
     Indication: NEPHROGENIC ANAEMIA
     Route: 058
     Dates: start: 20120714, end: 20120714
  2. METHOXY POLYETHYLENE GLYCOL-EPOETIN BETA [Suspect]
     Indication: NEPHROGENIC ANAEMIA
     Route: 058
     Dates: start: 20120908, end: 20120908
  3. LIVALO [Concomitant]
     Indication: HYPERLIPIDAEMIA
     Route: 048
     Dates: end: 20130125
  4. KIPRES [Concomitant]
     Indication: ASTHMA
     Route: 048
     Dates: end: 20130125
  5. RASILEZ [Concomitant]
     Indication: HYPERTENSION
     Route: 048
     Dates: end: 20130125
  6. CELECOX [Concomitant]
     Indication: RHEUMATOID ARTHRITIS
     Route: 048
     Dates: end: 20130125
  7. PREDONINE [Concomitant]
     Indication: RHEUMATOID ARTHRITIS
     Route: 048
     Dates: end: 20120713
  8. PREDONINE [Concomitant]
     Indication: RHEUMATOID ARTHRITIS
     Route: 048
     Dates: start: 20120714, end: 20130125
  9. MYSLEE [Concomitant]
     Indication: INSOMNIA
     Route: 048
     Dates: end: 20130125
  10. OLMETEC [Concomitant]
     Indication: HYPERTENSION
     Route: 048
     Dates: end: 20130125
  11. EPERISONE HYDROCHLORIDE [Concomitant]
     Route: 048
     Dates: end: 20130125
  12. AZULFIDINE-EN [Concomitant]
     Indication: RHEUMATOID ARTHRITIS
     Route: 048
     Dates: end: 20130125
  13. BENET [Concomitant]
     Indication: OSTEOPOROSIS
     Route: 048
     Dates: end: 20130125
  14. AMLODIPINE [Concomitant]
     Indication: HYPERTENSION
     Route: 048
     Dates: end: 20130125
  15. LANSOPRAZOLE [Concomitant]
     Indication: PROPHYLAXIS
     Route: 048
     Dates: end: 20130125
  16. FUROSEMIDE [Concomitant]
     Route: 048
     Dates: end: 20130125
  17. FEBURIC [Concomitant]
     Indication: HYPERURICAEMIA
     Route: 048
     Dates: start: 20120908, end: 20130125

REACTIONS (2)
  - Duodenal ulcer perforation [Fatal]
  - Pancreatitis acute [Fatal]
